FAERS Safety Report 10081618 (Version 1)
Quarter: 2014Q2

REPORT INFORMATION
  Report Type: Report from Study
  Country: US (occurrence: US)
  Receive Date: 20140416
  Receipt Date: 20140416
  Transmission Date: 20141212
  Serious: Yes (Hospitalization)
  Sender: FDA-Public Use
  Company Number: US-TMC-CABO-14004181

PATIENT
  Sex: Male
  Weight: 68 kg

DRUGS (2)
  1. CABOZANTINIB [Suspect]
     Indication: HEPATIC CANCER
     Dosage: 100 MG, QD
     Route: 048
     Dates: start: 20131029, end: 2014
  2. CABOZANTINIB [Suspect]
     Dosage: 100 MG, QD
     Route: 048
     Dates: start: 2014

REACTIONS (3)
  - Chest pain [Unknown]
  - Malaise [Unknown]
  - Off label use [Unknown]
